FAERS Safety Report 17561001 (Version 1)
Quarter: 2020Q1

REPORT INFORMATION
  Report Type: Spontaneous
  Country: US (occurrence: US)
  Receive Date: 20200319
  Receipt Date: 20200319
  Transmission Date: 20200409
  Serious: Yes (Death, Life-Threatening, Hospitalization)
  Sender: FDA-Public Use
  Company Number: US-MYLANLABS-2020M1029542

PATIENT
  Age: 71 Year
  Sex: Female

DRUGS (1)
  1. ALLOPURINOL. [Suspect]
     Active Substance: ALLOPURINOL
     Indication: GOUT
     Route: 065

REACTIONS (9)
  - Acute kidney injury [Unknown]
  - Septic shock [Fatal]
  - Respiratory failure [Unknown]
  - Gastrointestinal haemorrhage [Fatal]
  - Ileus [Unknown]
  - Anaemia [Unknown]
  - Stevens-Johnson syndrome [Fatal]
  - Toxic epidermal necrolysis [Fatal]
  - Diarrhoea haemorrhagic [Unknown]
